FAERS Safety Report 25430483 (Version 1)
Quarter: 2025Q2

REPORT INFORMATION
  Report Type: Spontaneous
  Country: US (occurrence: US)
  Receive Date: 20250612
  Receipt Date: 20250612
  Transmission Date: 20250716
  Serious: Yes (Hospitalization, Other)
  Sender: TAKEDA
  Company Number: US-TAKEDA-2025TUS053777

PATIENT
  Sex: Male
  Weight: 81.82 kg

DRUGS (5)
  1. ADVATE [Suspect]
     Active Substance: ANTIHEMOPHILIC FACTOR, HUMAN RECOMBINANT
     Indication: Factor VIII deficiency
  2. ADVATE [Suspect]
     Active Substance: ANTIHEMOPHILIC FACTOR, HUMAN RECOMBINANT
     Indication: Haemarthrosis
  3. ADVATE [Suspect]
     Active Substance: ANTIHEMOPHILIC FACTOR, HUMAN RECOMBINANT
     Indication: Gastric haemorrhage
     Dates: start: 20131011, end: 20131016
  4. CHONDROITIN SULFATE (BOVINE)\GLUCOSAMINE HYDROCHLORIDE [Concomitant]
     Active Substance: CHONDROITIN SULFATE (BOVINE)\GLUCOSAMINE HYDROCHLORIDE
     Indication: Product used for unknown indication
  5. DIETARY SUPPLEMENT\HERBALS\MILK THISTLE [Concomitant]
     Active Substance: MILK THISTLE
     Indication: Product used for unknown indication

REACTIONS (11)
  - Cholecystitis [Recovered/Resolved]
  - Pain [Recovered/Resolved]
  - Intra-abdominal haemorrhage [Recovered/Resolved]
  - Abdominal distension [Recovered/Resolved]
  - Weight increased [Recovered/Resolved]
  - Feeling abnormal [Recovered/Resolved]
  - Muscle spasms [Unknown]
  - Electrolyte imbalance [Unknown]
  - Gastrointestinal disorder [Recovered/Resolved]
  - Weight decreased [Recovered/Resolved]
  - Abdominal pain [Recovered/Resolved]

NARRATIVE: CASE EVENT DATE: 20130101
